FAERS Safety Report 12247062 (Version 1)
Quarter: 2016Q2

REPORT INFORMATION
  Report Type: Report from Study
  Country: US (occurrence: US)
  Receive Date: 20160407
  Receipt Date: 20160407
  Transmission Date: 20160815
  Serious: No
  Sender: FDA-Public Use
  Company Number: ADR-2014-00503

PATIENT
  Age: 48 Year
  Sex: Male

DRUGS (8)
  1. COMPOUNDED BACLOFEN [Suspect]
     Active Substance: BACLOFEN
     Dosage: 85.00 MCG/DAY
     Route: 037
     Dates: start: 20140715
  2. COMPOUNDED BACLOFEN [Suspect]
     Active Substance: BACLOFEN
     Dosage: 50.98MCG/DAY
     Route: 037
  3. MORPHINE [Suspect]
     Active Substance: MORPHINE
     Dosage: 0.6 MG/DAY
     Route: 037
  4. CLONIDINE. [Suspect]
     Active Substance: CLONIDINE
     Dosage: 24.37 MCG/DAY,
     Route: 037
     Dates: start: 20140715
  5. BUPIVACAINE. [Suspect]
     Active Substance: BUPIVACAINE
     Dosage: 0.5000 MG/DAY
     Route: 037
     Dates: start: 20140715
  6. BUPIVACAINE. [Suspect]
     Active Substance: BUPIVACAINE
     Dosage: 0.2999 MG/DAY
     Route: 037
  7. CLONIDINE. [Suspect]
     Active Substance: CLONIDINE
     Dosage: 14.62 MCG/DAY
     Route: 037
  8. MORPHINE [Suspect]
     Active Substance: MORPHINE
     Dosage: 1.000 MG/DAY
     Route: 037
     Dates: start: 20140715

REACTIONS (2)
  - Implant site extravasation [Recovered/Resolved]
  - Hyperaesthesia [Recovered/Resolved]
